FAERS Safety Report 9165326 (Version 1)
Quarter: 2013Q1

REPORT INFORMATION
  Report Type: Spontaneous
  Country: GB (occurrence: None)
  Receive Date: 20130301
  Receipt Date: 20130301
  Transmission Date: 20140127
  Serious: Yes (Hospitalization)
  Sender: FDA-Public Use
  Company Number: TUK2013A00039

PATIENT
  Age: 79 Year
  Sex: Male

DRUGS (12)
  1. PIOGLITAZONE HYDROCHLORIDE [Suspect]
     Indication: TYPE 2 DIABETES MELLITUS
     Route: 048
     Dates: start: 20120501, end: 20130120
  2. ASPIRIN (ACETYLSALICYLIC ACID) [Concomitant]
  3. ATORVASTATIN (ATORVASTATIN) [Concomitant]
  4. DIPYRIDAMOLE (DIPYRIDAMOLE) [Concomitant]
  5. DOXAZOSIN (DOXAZOSIN) [Concomitant]
  6. FERROUS FUMARATE (FERROUS FUMARATE) [Concomitant]
  7. HYDROXOCOBALAMIN (HYDROXOCOBALAMIN) [Concomitant]
  8. METFORMIN (METFORMIN) [Concomitant]
  9. PERINDOPRIL (PERINDOPRIL) [Concomitant]
  10. SYMBICORT (FORMOTEROL FUMARATE, BUDESONIDE) [Concomitant]
  11. TERBUTALINE (TERBUTALINE) NEBULISER SOLUTION, 5MG/2ML [Concomitant]
  12. TILDIEM LA (DILTIAZEM HYDROCHLORIDE) [Concomitant]

REACTIONS (4)
  - Cardiac failure [None]
  - Tricuspid valve incompetence [None]
  - Poverty of speech [None]
  - Productive cough [None]
